FAERS Safety Report 19151602 (Version 1)
Quarter: 2021Q2

REPORT INFORMATION
  Report Type: Spontaneous
  Country: US (occurrence: US)
  Receive Date: 20210419
  Receipt Date: 20210419
  Transmission Date: 20210717
  Serious: No
  Sender: FDA-Public Use
  Company Number: US-UCBSA-2021004630

PATIENT
  Age: 79 Year
  Sex: Female

DRUGS (1)
  1. NEUPRO [Suspect]
     Active Substance: ROTIGOTINE
     Indication: RESTLESS LEGS SYNDROME
     Dosage: 4 MILLIGRAM, ONCE DAILY (QD)
     Route: 062

REACTIONS (3)
  - Overdose [Unknown]
  - Application site vesicles [Unknown]
  - Application site erythema [Unknown]
